FAERS Safety Report 10439295 (Version 1)
Quarter: 2014Q3

REPORT INFORMATION
  Report Type: Spontaneous
  Country: US (occurrence: US)
  Receive Date: 20140908
  Receipt Date: 20140908
  Transmission Date: 20150326
  Serious: Yes (Other)
  Sender: FDA-Public Use
  Company Number: US-BRISTOL-MYERS SQUIBB COMPANY-19202530

PATIENT
  Age: 23 Year
  Sex: Male
  Weight: 95.24 kg

DRUGS (2)
  1. ABILIFY [Suspect]
     Active Substance: ARIPIPRAZOLE
     Route: 048
  2. LUVOX [Suspect]
     Active Substance: FLUVOXAMINE MALEATE

REACTIONS (2)
  - Convulsion [Unknown]
  - Aggression [Unknown]

NARRATIVE: CASE EVENT DATE: 201211
